FAERS Safety Report 9107407 (Version 1)
Quarter: 2013Q1

REPORT INFORMATION
  Report Type: Spontaneous
  Country: US (occurrence: US)
  Receive Date: 20130221
  Receipt Date: 20130221
  Transmission Date: 20140127
  Serious: Yes (Other)
  Sender: FDA-Public Use
  Company Number: US-009507513-0911USA00551

PATIENT
  Sex: Female

DRUGS (1)
  1. FOSAMAX [Suspect]
     Indication: OSTEOPOROSIS
     Dosage: UNK
     Route: 048
     Dates: start: 2000, end: 200503

REACTIONS (12)
  - Myocardial infarction [Not Recovered/Not Resolved]
  - Chest pain [Recovered/Resolved]
  - Neck pain [Recovered/Resolved]
  - Pain in jaw [Recovered/Resolved]
  - Back pain [Not Recovered/Not Resolved]
  - Polymyalgia rheumatica [Not Recovered/Not Resolved]
  - Night sweats [Not Recovered/Not Resolved]
  - Hiatus hernia [Recovered/Resolved]
  - Palmar erythema [Recovered/Resolved]
  - Erythema [Recovered/Resolved]
  - Plantar erythema [Recovered/Resolved]
  - Pruritus [Recovered/Resolved]
